FAERS Safety Report 5180959-8 (Version None)
Quarter: 2006Q4

REPORT INFORMATION
  Report Type: 
  Country: None (occurrence: None)
  Receive Date: 20061214
  Receipt Date: 20061214
  Transmission Date: 20070319
  Serious: Yes (Hospitalization)
  Sender: FDA-Public Use
  Company Number: None

PATIENT
  Sex: Female
  Weight: 64.7 kg

DRUGS (6)
  1. TEMOZOLOMIDE [Suspect]
  2. DAPSONE [Suspect]
     Dosage: 100 MG PO DAILY
     Route: 048
  3. PROPRANOLOL [Suspect]
     Dosage: 40 MG PO Q8 HRS
     Route: 048
  4. TAPAZOLE [Suspect]
     Dosage: 30 MG PO DAILY
     Route: 048
  5. ZOFRAN [Suspect]
     Dosage: 8 MG PO 1/2 HR PRIOR TEMODAR AND EVERY 6-8 HRS PRN
  6. XXX [Concomitant]

REACTIONS (4)
  - HYPOAESTHESIA [None]
  - PARAESTHESIA [None]
  - PARTIAL SEIZURES [None]
  - TRANSIENT ISCHAEMIC ATTACK [None]
